FAERS Safety Report 6959229-0 (Version None)
Quarter: 2010Q3

REPORT INFORMATION
  Report Type: 
  Country: None (occurrence: None)
  Receive Date: 20100831
  Receipt Date: 20100819
  Transmission Date: 20110219
  Serious: Yes (Hospitalization, Other)
  Sender: FDA-Public Use
  Company Number: US-PFIZER INC-2010105514

PATIENT
  Sex: Female
  Weight: 72.562 kg

DRUGS (1)
  1. LYRICA [Suspect]
     Indication: NEUROPATHY PERIPHERAL
     Dosage: UNK
     Dates: start: 20100501, end: 20100501

REACTIONS (7)
  - ABNORMAL BEHAVIOUR [None]
  - CONVERSION DISORDER [None]
  - HALLUCINATION [None]
  - HEART RATE DECREASED [None]
  - KNEE ARTHROPLASTY [None]
  - MEMORY IMPAIRMENT [None]
  - SPEECH DISORDER [None]
